FAERS Safety Report 7849693-7 (Version None)
Quarter: 2011Q4

REPORT INFORMATION
  Report Type: 
  Country: None (occurrence: None)
  Receive Date: 20111025
  Receipt Date: 20111025
  Transmission Date: 20120403
  Serious: Yes (Life-Threatening, Hospitalization)
  Sender: FDA-Public Use
  Company Number: None

PATIENT
  Age: 50 Year
  Sex: Male
  Weight: 83.4 kg

DRUGS (1)
  1. PREDNISONE [Suspect]
     Indication: INFLAMMATION
     Dosage: 40 MG EVERY DAY PO
     Route: 048
     Dates: start: 20110904, end: 20110910

REACTIONS (3)
  - HALLUCINATION [None]
  - DEPRESSION [None]
  - SUICIDAL IDEATION [None]
